FAERS Safety Report 21053407 (Version 6)
Quarter: 2023Q1

REPORT INFORMATION
  Report Type: Report from Study
  Country: US (occurrence: US)
  Receive Date: 20220707
  Receipt Date: 20230109
  Transmission Date: 20230418
  Serious: Yes (Hospitalization, Other)
  Sender: FDA-Public Use
  Company Number: US-002147023-NVSC2022US152298

PATIENT
  Sex: Female
  Weight: 89.811 kg

DRUGS (3)
  1. TREPROSTINIL [Suspect]
     Active Substance: TREPROSTINIL
     Indication: Pulmonary arterial hypertension
     Dosage: 88 NG/KG/MIN, CONT
     Route: 042
     Dates: start: 20190625
  2. TREPROSTINIL [Suspect]
     Active Substance: TREPROSTINIL
     Dosage: 101 NG/KG/MIN, CONT
     Route: 042
  3. AMBRISENTAN [Concomitant]
     Active Substance: AMBRISENTAN
     Indication: Product used for unknown indication
     Dosage: UNK
     Route: 065

REACTIONS (4)
  - Pulmonary hypertension [Unknown]
  - COVID-19 [Unknown]
  - Device leakage [Unknown]
  - Device breakage [Unknown]
